FAERS Safety Report 19277947 (Version 1)
Quarter: 2021Q2

REPORT INFORMATION
  Report Type: Spontaneous
  Country: US (occurrence: US)
  Receive Date: 20210519
  Receipt Date: 20210519
  Transmission Date: 20210717
  Serious: Yes (Hospitalization)
  Sender: FDA-Public Use
  Company Number: None

PATIENT
  Age: 48 Year
  Sex: Female
  Weight: 69.75 kg

DRUGS (3)
  1. GREEN MALAY KRATOM [Suspect]
     Active Substance: HERBALS\MITRAGYNINE
  2. RED MAENG DA KRATOM (MITRAGYNA SPECIOSA) [Suspect]
     Active Substance: HERBALS\MITRAGYNINE
     Indication: BACK PAIN
     Route: 048
     Dates: start: 20210228, end: 20210312
  3. RED BENTUANGIE KRATOM [Suspect]
     Active Substance: HERBALS\MITRAGYNINE

REACTIONS (22)
  - Headache [None]
  - Night sweats [None]
  - Sneezing [None]
  - Chromaturia [None]
  - Arthralgia [None]
  - Pulmonary pain [None]
  - Body temperature fluctuation [None]
  - Tinnitus [None]
  - Fatigue [None]
  - Abdominal pain upper [None]
  - Jaundice [None]
  - Somnolence [None]
  - Dyspnoea [None]
  - Pyrexia [None]
  - Asthenia [None]
  - Nausea [None]
  - Pruritus [None]
  - Myalgia [None]
  - Dizziness [None]
  - Rhinorrhoea [None]
  - Drug-induced liver injury [None]
  - Cholelithiasis [None]

NARRATIVE: CASE EVENT DATE: 20210319
